FAERS Safety Report 10301333 (Version 1)
Quarter: 2014Q3

REPORT INFORMATION
  Report Type: Spontaneous
  Country: US (occurrence: None)
  Receive Date: 20140708
  Receipt Date: 20140708
  Transmission Date: 20150326
  Serious: Yes (Other)
  Sender: FDA-Public Use
  Company Number: 2014VER00054

PATIENT
  Age: 38 Year
  Sex: Female

DRUGS (1)
  1. MYORISAN [Suspect]
     Active Substance: ISOTRETINOIN
     Indication: ACNE
     Route: 048
     Dates: end: 20140618

REACTIONS (4)
  - Epistaxis [None]
  - Mood swings [None]
  - Unevaluable event [None]
  - Ear haemorrhage [None]

NARRATIVE: CASE EVENT DATE: 2014
